FAERS Safety Report 9438312 (Version 1)
Quarter: 2013Q3

REPORT INFORMATION
  Report Type: Spontaneous
  Country: US (occurrence: US)
  Receive Date: 20130802
  Receipt Date: 20130802
  Transmission Date: 20140515
  Serious: Yes (Hospitalization)
  Sender: FDA-Public Use
  Company Number: US-BRISTOL-MYERS SQUIBB COMPANY-17136409

PATIENT
  Age: 77 Year
  Sex: Female
  Weight: 64.85 kg

DRUGS (10)
  1. COUMADIN TABS [Suspect]
     Route: 048
  2. XARELTO [Suspect]
     Indication: ATRIAL FIBRILLATION
     Dosage: TAB
     Route: 048
     Dates: start: 20120822, end: 20120918
  3. XARELTO [Suspect]
     Indication: CEREBROVASCULAR ACCIDENT PROPHYLAXIS
     Dosage: TAB
     Route: 048
     Dates: start: 20120822, end: 20120918
  4. LIPITOR [Concomitant]
  5. ERGOCALCIFEROL [Concomitant]
     Dosage: CAPSULE
  6. HYDROCHLOROTHIAZIDE [Concomitant]
     Dosage: TABLET
  7. AMIODARONE [Concomitant]
     Dosage: TABS
  8. KLOR-CON [Concomitant]
  9. DIOVAN [Concomitant]
     Dosage: TABS
  10. FLEXERIL [Concomitant]
     Dosage: TABS
     Dates: start: 20120822

REACTIONS (3)
  - Gingival bleeding [Recovered/Resolved]
  - International normalised ratio increased [Recovered/Resolved]
  - Musculoskeletal pain [Unknown]
